FAERS Safety Report 4408911-8 (Version None)
Quarter: 2004Q3

REPORT INFORMATION
  Report Type: 
  Country: None (occurrence: None)
  Receive Date: 20040727
  Receipt Date: 20040716
  Transmission Date: 20050211
  Serious: Yes (Hospitalization)
  Sender: FDA-Public Use
  Company Number: DE-ROCHE-374448

PATIENT
  Sex: Female

DRUGS (1)
  1. ROCEPHIN [Suspect]
     Indication: LYME DISEASE
     Route: 065

REACTIONS (5)
  - DIALYSIS [None]
  - DRUG THERAPEUTIC INCOMPATIBILITY [None]
  - HEPATIC FAILURE [None]
  - PULMONARY OEDEMA [None]
  - RENAL FAILURE [None]
